FAERS Safety Report 7256095-3 (Version None)
Quarter: 2011Q1

REPORT INFORMATION
  Report Type: 
  Country: None (occurrence: None)
  Receive Date: 20110129
  Receipt Date: 20100527
  Transmission Date: 20110831
  Serious: No
  Sender: FDA-Public Use
  Company Number: US-ABBOTT-10P-163-0648738-00

PATIENT
  Sex: Male
  Weight: 88.984 kg

DRUGS (3)
  1. IBUPROFEN [Concomitant]
     Indication: BACK PAIN
  2. IBUPROFEN [Concomitant]
     Indication: ARTHRALGIA
  3. HUMIRA [Suspect]
     Indication: PSORIASIS

REACTIONS (7)
  - BACK PAIN [None]
  - LIMB INJURY [None]
  - ERYTHEMA [None]
  - PSORIATIC ARTHROPATHY [None]
  - PSORIASIS [None]
  - JOINT SWELLING [None]
  - ARTHRALGIA [None]
